FAERS Safety Report 9918756 (Version 1)
Quarter: 2014Q1

REPORT INFORMATION
  Report Type: Report from Study
  Country: CA (occurrence: CA)
  Receive Date: 20140224
  Receipt Date: 20140224
  Transmission Date: 20141002
  Serious: Yes (Death)
  Sender: FDA-Public Use
  Company Number: CA-JNJFOC-20140213499

PATIENT
  Sex: Male

DRUGS (6)
  1. TYLENOL NO. 1 [Suspect]
     Route: 048
  2. TYLENOL NO. 1 [Suspect]
     Indication: PRODUCT USED FOR UNKNOWN INDICATION
     Dosage: 5-6 PER DAY, FOR 3 DAYS
     Route: 048
     Dates: start: 20060521, end: 20060524
  3. CODEINE [Concomitant]
     Indication: PRODUCT USED FOR UNKNOWN INDICATION
     Route: 065
  4. CAFFEINE [Concomitant]
     Indication: PRODUCT USED FOR UNKNOWN INDICATION
     Route: 065
  5. ACETYLSALICYLIC ACID [Concomitant]
     Indication: PRODUCT USED FOR UNKNOWN INDICATION
     Route: 065
  6. ETHANOL [Concomitant]
     Indication: PRODUCT USED FOR UNKNOWN INDICATION
     Route: 065

REACTIONS (9)
  - Pneumococcal bacteraemia [Fatal]
  - Infectious pleural effusion [Fatal]
  - Metabolic encephalopathy [Fatal]
  - Acute hepatic failure [Fatal]
  - Renal failure acute [Fatal]
  - Toxicity to various agents [Fatal]
  - Hepatitis C [Fatal]
  - Alcohol abuse [Fatal]
  - Brain oedema [Unknown]
